FAERS Safety Report 11921914 (Version 3)
Quarter: 2016Q1

REPORT INFORMATION
  Report Type: Spontaneous
  Country: US (occurrence: US)
  Receive Date: 20160115
  Receipt Date: 20160322
  Transmission Date: 20160526
  Serious: Yes (Other)
  Sender: FDA-Public Use
  Company Number: US-CELGENEUS-USA-2016012567

PATIENT
  Sex: Female

DRUGS (2)
  1. OTEZLA [Suspect]
     Active Substance: APREMILAST
     Indication: PSORIASIS
     Route: 048
  2. OTEZLA [Suspect]
     Active Substance: APREMILAST
     Indication: PSORIATIC ARTHROPATHY
     Route: 048
     Dates: end: 20160112

REACTIONS (6)
  - Productive cough [Recovered/Resolved]
  - Skin exfoliation [Unknown]
  - Upper respiratory tract infection [Unknown]
  - Pain [Unknown]
  - Cough [Recovered/Resolved]
  - Weight decreased [Recovered/Resolved]
